FAERS Safety Report 4360728-9 (Version None)
Quarter: 2004Q2

REPORT INFORMATION
  Report Type: 
  Country: None (occurrence: None)
  Receive Date: 20040514
  Receipt Date: 20040503
  Transmission Date: 20050107
  Serious: Yes (Other)
  Sender: FDA-Public Use
  Company Number: HQWYE794019DEC03

PATIENT
  Age: 59 Year
  Sex: Male

DRUGS (3)
  1. CORDARONE [Suspect]
     Indication: ATRIAL FLUTTER
     Dosage: SINGLE 300 MG DOSE; INTRAVENOUS
     Route: 042
     Dates: start: 20031204, end: 20031204
  2. SOTALOL HCL [Concomitant]
  3. ASPIRIN [Concomitant]

REACTIONS (3)
  - DYSPNOEA [None]
  - MEDICATION ERROR [None]
  - RASH PRURITIC [None]
